FAERS Safety Report 6158175-2 (Version None)
Quarter: 2009Q2

REPORT INFORMATION
  Report Type: 
  Country: None (occurrence: None)
  Receive Date: 20090417
  Receipt Date: 20080822
  Transmission Date: 20091009
  Serious: No
  Sender: FDA-Public Use
  Company Number: US-AMGEN-US303314

PATIENT
  Sex: Female

DRUGS (1)
  1. SENSIPAR [Suspect]
     Indication: PARATHYROID TUMOUR MALIGNANT
     Route: 065
     Dates: start: 20080820

REACTIONS (4)
  - ANXIETY [None]
  - ENERGY INCREASED [None]
  - FEELING JITTERY [None]
  - NAUSEA [None]
